FAERS Safety Report 11862958 (Version 2)
Quarter: 2015Q4

REPORT INFORMATION
  Report Type: Spontaneous
  Country: US (occurrence: US)
  Receive Date: 20151223
  Receipt Date: 20151230
  Transmission Date: 20160305
  Serious: Yes (Other)
  Sender: FDA-Public Use
  Company Number: US-DRREDDYS-USA/USA/15/0054525

PATIENT
  Age: 17 Year
  Sex: Male
  Weight: 50 kg

DRUGS (1)
  1. ZENATANE [Suspect]
     Active Substance: ISOTRETINOIN
     Indication: ACNE
     Dosage: 40 MG DAILY IN THE MORNING AND 20 MG IN THE EVENING.
     Route: 048

REACTIONS (4)
  - Nail infection [Unknown]
  - Amnesia [Recovering/Resolving]
  - Nail bed inflammation [Unknown]
  - Staphylococcal infection [Unknown]
